FAERS Safety Report 8163041-7 (Version None)
Quarter: 2012Q1

REPORT INFORMATION
  Report Type: 
  Country: None (occurrence: None)
  Receive Date: 20120224
  Receipt Date: 20120221
  Transmission Date: 20120608
  Serious: Yes (Death)
  Sender: FDA-Public Use
  Company Number: AU-B.I. PHARMACEUTICALS,INC./RIDGEFIELD-2011-AU-02232AU

PATIENT
  Sex: Male
  Weight: 87 kg

DRUGS (8)
  1. IRBESARTAN [Concomitant]
     Dosage: 300 MG
     Dates: start: 20110215, end: 20111013
  2. FISH OIL [Concomitant]
     Dosage: 2 DAILY
     Dates: start: 20010101, end: 20111013
  3. LANOXIN [Concomitant]
  4. PRADAXA [Suspect]
     Indication: ATRIAL FIBRILLATION
     Dosage: 220 MG
     Dates: start: 20110811, end: 20111013
  5. CARVEDILOL [Concomitant]
     Dosage: 50 MG
     Dates: start: 20070101, end: 20111013
  6. SEREPAX [Concomitant]
  7. FUROSEMIDE [Concomitant]
     Dosage: 80 MG
     Dates: start: 20080115, end: 20111013
  8. LEVOTHYROXINE SODIUM [Concomitant]
     Dosage: 200 MCG
     Dates: start: 20040101, end: 20111013

REACTIONS (2)
  - PULMONARY HAEMORRHAGE [None]
  - THROMBOCYTOPENIA [None]
